FAERS Safety Report 7177565-2 (Version None)
Quarter: 2010Q4

REPORT INFORMATION
  Report Type: 
  Country: None (occurrence: None)
  Receive Date: 20101220
  Receipt Date: 20101209
  Transmission Date: 20110411
  Serious: Yes (Hospitalization)
  Sender: FDA-Public Use
  Company Number: UA-ELI_LILLY_AND_COMPANY-UA201012002786

PATIENT
  Age: 50 Year
  Sex: Female

DRUGS (3)
  1. BYETTA [Suspect]
     Indication: TYPE 2 DIABETES MELLITUS
     Dosage: 0.25 MG, 2/D
     Route: 058
  2. AMARYL [Concomitant]
  3. SIOFOR [Concomitant]

REACTIONS (5)
  - DERMATITIS [None]
  - HYPERKERATOSIS [None]
  - PETECHIAE [None]
  - SKIN CHAPPED [None]
  - SKIN EXFOLIATION [None]
